FAERS Safety Report 11543463 (Version 1)
Quarter: 2015Q3

REPORT INFORMATION
  Report Type: Report from Study
  Country: US (occurrence: US)
  Receive Date: 20150923
  Receipt Date: 20150923
  Transmission Date: 20151125
  Serious: Yes (Hospitalization, Other)
  Sender: FDA-Public Use
  Company Number: US-ABBVIE-15K-163-1463473-00

PATIENT
  Age: 68 Year
  Sex: Male
  Weight: 87.62 kg

DRUGS (3)
  1. HUMIRA [Suspect]
     Active Substance: ADALIMUMAB
     Indication: COLITIS ULCERATIVE
     Route: 058
     Dates: start: 2012
  2. LISINOPRIL. [Concomitant]
     Active Substance: LISINOPRIL
     Indication: HYPERTENSION
     Dates: end: 201505
  3. GLIPIZIDE. [Concomitant]
     Active Substance: GLIPIZIDE
     Indication: DIABETES MELLITUS
     Dates: end: 201505

REACTIONS (20)
  - Deafness unilateral [Not Recovered/Not Resolved]
  - Hypophagia [Unknown]
  - Weight decreased [Recovering/Resolving]
  - Renal failure [Recovering/Resolving]
  - Diarrhoea [Not Recovered/Not Resolved]
  - Blood creatinine increased [Unknown]
  - Azotaemia [Recovering/Resolving]
  - Pancreatitis [Recovered/Resolved]
  - Thirst decreased [Recovering/Resolving]
  - Anaemia [Recovering/Resolving]
  - Sepsis [Recovered/Resolved]
  - Malaise [Recovering/Resolving]
  - Nerve injury [Not Recovered/Not Resolved]
  - Nephrolithiasis [Recovered/Resolved]
  - Nephrolithiasis [Unknown]
  - General physical health deterioration [Unknown]
  - Fluid intake reduced [Unknown]
  - Blood phosphorus increased [Unknown]
  - Feeling of despair [Unknown]
  - Decreased appetite [Recovering/Resolving]

NARRATIVE: CASE EVENT DATE: 201411
